FAERS Safety Report 17283697 (Version 1)
Quarter: 2020Q1

REPORT INFORMATION
  Report Type: Spontaneous
  Country: JP (occurrence: JP)
  Receive Date: 20200117
  Receipt Date: 20200117
  Transmission Date: 20200409
  Serious: Yes (Other)
  Sender: FDA-Public Use
  Company Number: JP-PFIZER INC-2020017573

PATIENT
  Age: 68 Year
  Sex: Male

DRUGS (2)
  1. SOLANAX [Suspect]
     Active Substance: ALPRAZOLAM
  2. AMOBANTES [Suspect]
     Active Substance: ZOPICLONE
     Route: 048

REACTIONS (3)
  - Angina pectoris [Unknown]
  - Pollakiuria [Unknown]
  - Nasopharyngitis [Unknown]
